FAERS Safety Report 9003149 (Version 2)
Quarter: 2014Q2

REPORT INFORMATION
  Report Type: Spontaneous
  Country: DK (occurrence: DK)
  Receive Date: 20130108
  Receipt Date: 20140507
  Transmission Date: 20141212
  Serious: Yes (Hospitalization, Other)
  Sender: FDA-Public Use
  Company Number: DK-PFIZER INC-2013001695

PATIENT
  Age: 43 Year
  Sex: Female

DRUGS (4)
  1. SALAZOPYRIN [Suspect]
     Indication: SERONEGATIVE ARTHRITIS
     Dosage: UNK
     Dates: start: 2000
  2. SALAZOPYRIN [Suspect]
     Dosage: 1500 MG/ 2 X DAILY
     Dates: start: 20101214
  3. PREDNISOLON [Concomitant]
     Indication: SERONEGATIVE ARTHRITIS
     Dates: start: 20100707
  4. METHOTREXAT [Concomitant]
     Indication: SERONEGATIVE ARTHRITIS
     Dosage: UNK
     Dates: start: 20110524

REACTIONS (15)
  - Convulsion [Recovered/Resolved]
  - Cerebral thrombosis [Recovered/Resolved with Sequelae]
  - Transient ischaemic attack [Recovered/Resolved]
  - Arthritis infective [Recovered/Resolved]
  - Mental impairment [Not Recovered/Not Resolved]
  - Rash [Recovered/Resolved]
  - Alopecia [Recovered/Resolved]
  - Hepatic function abnormal [Recovered/Resolved]
  - Memory impairment [Not Recovered/Not Resolved]
  - Disorientation [Not Recovered/Not Resolved]
  - Decreased appetite [Recovered/Resolved]
  - Myositis [Recovered/Resolved]
  - VIIth nerve paralysis [Recovered/Resolved]
  - Sensory loss [Recovered/Resolved]
  - Movement disorder [Unknown]
